FAERS Safety Report 7746911-0 (Version None)
Quarter: 2011Q3

REPORT INFORMATION
  Report Type: 
  Country: None (occurrence: None)
  Receive Date: 20110913
  Receipt Date: 20110829
  Transmission Date: 20111222
  Serious: Yes (Hospitalization)
  Sender: FDA-Public Use
  Company Number: PHHY2011TW79979

PATIENT

DRUGS (1)
  1. SEBIVO [Suspect]
     Dosage: MATERNAL DOSE 600 MG DAILY

REACTIONS (3)
  - MATERNAL EXPOSURE DURING PREGNANCY [None]
  - EXPOSURE DURING BREAST FEEDING [None]
  - CYANOSIS NEONATAL [None]
